FAERS Safety Report 8267228-4 (Version None)
Quarter: 2012Q2

REPORT INFORMATION
  Report Type: 
  Country: None (occurrence: None)
  Receive Date: 20120404
  Receipt Date: 20120323
  Transmission Date: 20120825
  Serious: Yes (Hospitalization)
  Sender: FDA-Public Use
  Company Number: DSM-2012-00350

PATIENT

DRUGS (10)
  1. CORDARONE [Concomitant]
  2. FUROSEMIDE [Concomitant]
  3. PREVISCAN (FLUINDIONE) (FLUINDIONE) [Concomitant]
  4. CETIRIZINE (CETIRIZINE) (CETIRIZINE) [Concomitant]
  5. LEXOMIL (BROMAZEPAM)(BROMAZEPAM) [Concomitant]
  6. PARIET (RABEPRAZOLE SODIUM) (RABEPRAZOLE SODIUM) [Concomitant]
  7. OLMESARTAN MEDOXOMIL [Suspect]
     Indication: HYPERTENSION
     Dosage: 10 MG,ORAL
     Route: 048
     Dates: end: 20111206
  8. TEMERIT (NEBIVOLOL) (NEBIVOLOL) [Concomitant]
  9. POTASSIUM CHLORIDE [Suspect]
     Indication: PRODUCT USED FOR UNKNOWN INDICATION
     Dosage: (2 IN 1 D),ORAL
     Route: 048
     Dates: start: 20111201, end: 20111206
  10. DISCOTRINE (GLYCERYL TRINITRATE) (TRANSDERMAL PATCH) (GLYCERYL TRINITR [Concomitant]

REACTIONS (7)
  - HYPERKALAEMIA [None]
  - HAEMOGLOBIN DECREASED [None]
  - MITRAL VALVE INCOMPETENCE [None]
  - INTERNATIONAL NORMALISED RATIO INCREASED [None]
  - TRICUSPID VALVE INCOMPETENCE [None]
  - RENAL FAILURE [None]
  - CARDIAC FAILURE CONGESTIVE [None]
